FAERS Safety Report 7209246-0 (Version None)
Quarter: 2011Q1

REPORT INFORMATION
  Report Type: 
  Country: None (occurrence: None)
  Receive Date: 20110104
  Receipt Date: 20101228
  Transmission Date: 20110831
  Serious: Yes (Other)
  Sender: FDA-Public Use
  Company Number: A0901706A

PATIENT
  Age: 50 Year
  Sex: Female

DRUGS (6)
  1. LEXAPRO [Concomitant]
  2. VENTOLIN HFA [Suspect]
     Route: 055
  3. FLUTICASONE NASAL SPRAY [Concomitant]
  4. LORATADINE [Concomitant]
  5. QVAR 40 [Concomitant]
  6. BUPROPION HCL [Concomitant]

REACTIONS (2)
  - PRODUCT QUALITY ISSUE [None]
  - SYNCOPE [None]
